FAERS Safety Report 20064195 (Version 3)
Quarter: 2021Q4

REPORT INFORMATION
  Report Type: Spontaneous
  Country: CN (occurrence: CN)
  Receive Date: 20211112
  Receipt Date: 20211222
  Transmission Date: 20220303
  Serious: Yes (Death, Other)
  Sender: FDA-Public Use
  Company Number: CN-PFIZER INC-202101513492

PATIENT
  Age: 46 Year
  Sex: Female

DRUGS (1)
  1. METHOTREXATE SODIUM [Suspect]
     Active Substance: METHOTREXATE SODIUM
     Indication: Lymphoma
     Dosage: 4.8 G, 1X/DAY
     Route: 041
     Dates: start: 20210923, end: 20210926

REACTIONS (5)
  - Myelosuppression [Fatal]
  - White blood cell count decreased [Fatal]
  - Neutrophil count decreased [Fatal]
  - Immune system disorder [Fatal]
  - Platelet count decreased [Unknown]

NARRATIVE: CASE EVENT DATE: 20211008
